FAERS Safety Report 5784867-0 (Version None)
Quarter: 2008Q2

REPORT INFORMATION
  Report Type: 
  Country: None (occurrence: None)
  Receive Date: 20080605
  Receipt Date: 20080416
  Transmission Date: 20081010
  Serious: No
  Sender: FDA-Public Use
  Company Number: A0723050A

PATIENT
  Age: 37 Year
  Sex: Female

DRUGS (3)
  1. ALLI [Suspect]
  2. EQUATE FIBER [Concomitant]
  3. CENTRUM [Concomitant]

REACTIONS (3)
  - ABDOMINAL PAIN [None]
  - CONSTIPATION [None]
  - FLATULENCE [None]
